FAERS Safety Report 11204366 (Version 1)
Quarter: 2015Q2

REPORT INFORMATION
  Report Type: Spontaneous
  Country: US (occurrence: US)
  Receive Date: 20150620
  Receipt Date: 20150620
  Transmission Date: 20150821
  Serious: No
  Sender: FDA-Public Use
  Company Number: US-TAKEDA-2015MPI002602

PATIENT
  Age: 86 Year
  Sex: Female

DRUGS (2)
  1. VELCADE [Suspect]
     Active Substance: BORTEZOMIB
     Indication: PLASMA CELL MYELOMA
     Dosage: 3.5 MG, UNK
     Route: 058
     Dates: start: 20150310
  2. ZOMETA [Concomitant]
     Active Substance: ZOLEDRONIC ACID
     Dosage: UNK

REACTIONS (1)
  - Mental status changes [Unknown]

NARRATIVE: CASE EVENT DATE: 20150421
